FAERS Safety Report 15928138 (Version 1)
Quarter: 2019Q1

REPORT INFORMATION
  Report Type: Spontaneous
  Country: US (occurrence: US)
  Receive Date: 20190205
  Receipt Date: 20190205
  Transmission Date: 20190417
  Serious: Yes (Other)
  Sender: FDA-Public Use
  Company Number: US-AMGEN-USASP2019015132

PATIENT
  Age: 86 Year
  Sex: Female

DRUGS (1)
  1. PROLIA [Suspect]
     Active Substance: DENOSUMAB
     Indication: OSTEOPENIA
     Dosage: UNK
     Route: 065
     Dates: start: 2016

REACTIONS (9)
  - Gingival bleeding [Unknown]
  - Lip swelling [Unknown]
  - Pruritus [Unknown]
  - Rash vesicular [Unknown]
  - Aortic valve disease [Unknown]
  - Blister [Unknown]
  - Off label use [Unknown]
  - Swollen tongue [Unknown]
  - Weight decreased [Unknown]

NARRATIVE: CASE EVENT DATE: 201808
